FAERS Safety Report 21172826 (Version 1)
Quarter: 2022Q3

REPORT INFORMATION
  Report Type: Spontaneous
  Country: US (occurrence: None)
  Receive Date: 20220804
  Receipt Date: 20220804
  Transmission Date: 20221027
  Serious: Yes (Hospitalization)
  Sender: FDA-Public Use
  Company Number: None

PATIENT
  Age: 62 Year
  Sex: Female

DRUGS (1)
  1. DIMETHYL FUMARATE [Suspect]
     Active Substance: DIMETHYL FUMARATE
     Indication: Multiple sclerosis
     Dosage: 240MG BID ORAL
     Route: 048
     Dates: start: 20211101

REACTIONS (2)
  - Multiple sclerosis relapse [None]
  - Meningitis [None]

NARRATIVE: CASE EVENT DATE: 20220707
